FAERS Safety Report 7296715-0 (Version None)
Quarter: 2011Q1

REPORT INFORMATION
  Report Type: 
  Country: None (occurrence: None)
  Receive Date: 20110216
  Receipt Date: 20110207
  Transmission Date: 20110831
  Serious: Yes (Hospitalization, Other)
  Sender: FDA-Public Use
  Company Number: US-ASTRAZENECA-2011SE03387

PATIENT
  Age: 60 Year
  Sex: Male

DRUGS (11)
  1. APAP BUTABITAL [Concomitant]
  2. CHLORAZEPAM [Concomitant]
  3. PHENOBARBITAL [Concomitant]
  4. SEROQUEL [Suspect]
     Indication: INSOMNIA
     Route: 048
     Dates: start: 20080101, end: 20101230
  5. OXYCODONE [Concomitant]
     Dates: start: 20101230
  6. TYLENOL [Concomitant]
     Dates: start: 20101230
  7. BACLOFEN [Concomitant]
     Indication: MUSCLE RELAXANT THERAPY
  8. HYDROMORPHONE HCL [Concomitant]
  9. MUSCLE RELAXER [Concomitant]
     Dates: start: 20101230
  10. TAMSULOSIN HCL [Concomitant]
  11. METHOCARBAMOL [Concomitant]
     Indication: MUSCLE RELAXANT THERAPY

REACTIONS (13)
  - ANTISOCIAL BEHAVIOUR [None]
  - IMPRISONMENT [None]
  - INTESTINAL OPERATION [None]
  - PULMONARY FUNCTION TEST DECREASED [None]
  - BLOOD GLUCOSE INCREASED [None]
  - AGGRESSION [None]
  - MEMORY IMPAIRMENT [None]
  - SKIN CANCER [None]
  - EPILEPSY [None]
  - WHEELCHAIR USER [None]
  - LUNG OPERATION [None]
  - PARANOIA [None]
  - PROSTATE CANCER [None]
